FAERS Safety Report 11790598 (Version 6)
Quarter: 2018Q3

REPORT INFORMATION
  Report Type: Spontaneous
  Country: US (occurrence: US)
  Receive Date: 20151201
  Receipt Date: 20180925
  Transmission Date: 20181010
  Serious: No
  Sender: FDA-Public Use
  Company Number: US-PFIZER INC-2015407030

PATIENT
  Age: 60 Year
  Sex: Female

DRUGS (2)
  1. NICOTROL [Suspect]
     Active Substance: NICOTINE
     Indication: SMOKING CESSATION THERAPY
     Dosage: UNK (3 A DAY OR 4)
     Dates: start: 2016
  2. CELEBREX [Suspect]
     Active Substance: CELECOXIB
     Indication: ARTHRITIS
     Dosage: UNK (THROUGH OUT DAY)

REACTIONS (4)
  - Malaise [Recovered/Resolved]
  - Mobility decreased [Recovered/Resolved]
  - Chest pain [Recovered/Resolved]
  - Feeling hot [Recovered/Resolved]
